FAERS Safety Report 11240683 (Version 4)
Quarter: 2015Q4

REPORT INFORMATION
  Report Type: Report from Study
  Country: US (occurrence: US)
  Receive Date: 20150706
  Receipt Date: 20151006
  Transmission Date: 20160304
  Serious: Yes (Hospitalization)
  Sender: FDA-Public Use
  Company Number: US-SA-2015SA045397

PATIENT
  Age: 67 Year
  Sex: Female
  Weight: 99 kg

DRUGS (6)
  1. AUBAGIO [Suspect]
     Active Substance: TERIFLUNOMIDE
     Indication: MULTIPLE SCLEROSIS
     Route: 048
     Dates: start: 20150414
  2. RANITIDINE [Concomitant]
     Active Substance: RANITIDINE\RANITIDINE HYDROCHLORIDE
     Indication: GASTROOESOPHAGEAL REFLUX DISEASE
  3. ASPIRIN. [Concomitant]
     Active Substance: ASPIRIN
     Indication: CEREBROVASCULAR ACCIDENT
  4. AUBAGIO [Suspect]
     Active Substance: TERIFLUNOMIDE
     Indication: MULTIPLE SCLEROSIS
     Route: 048
     Dates: start: 20150112, end: 20150202
  5. OMEPRAZOLE. [Concomitant]
     Active Substance: OMEPRAZOLE
     Indication: GASTROOESOPHAGEAL REFLUX DISEASE
  6. VALIUM [Concomitant]
     Active Substance: DIAZEPAM

REACTIONS (16)
  - Insomnia [Not Recovered/Not Resolved]
  - Intervertebral disc disorder [Unknown]
  - Asthenia [Unknown]
  - Movement disorder [Unknown]
  - Blindness [Recovering/Resolving]
  - Vision blurred [Recovering/Resolving]
  - Oedema peripheral [Recovering/Resolving]
  - Limb discomfort [Recovering/Resolving]
  - Hypokinesia [Unknown]
  - Headache [Unknown]
  - Drug dose omission [Unknown]
  - Dysstasia [Unknown]
  - Influenza [Recovered/Resolved]
  - Fall [Unknown]
  - Muscular weakness [Unknown]
  - Hypoaesthesia [Unknown]

NARRATIVE: CASE EVENT DATE: 2015
